FAERS Safety Report 18093962 (Version 4)
Quarter: 2020Q4

REPORT INFORMATION
  Report Type: Spontaneous
  Country: US (occurrence: US)
  Receive Date: 20200730
  Receipt Date: 20201204
  Transmission Date: 20210113
  Serious: Yes (Hospitalization)
  Sender: FDA-Public Use
  Company Number: US-SHIRE-US202015236

PATIENT
  Sex: Female
  Weight: 74.97 kg

DRUGS (20)
  1. GATTEX [Suspect]
     Active Substance: TEDUGLUTIDE\WATER
     Indication: SHORT-BOWEL SYNDROME
     Dosage: 0.1875 MILLILITER, 1X/DAY:QD
     Route: 065
  2. GATTEX [Suspect]
     Active Substance: TEDUGLUTIDE\WATER
     Indication: SHORT-BOWEL SYNDROME
     Dosage: 0.1875 MILLILITER, 1X/DAY:QD
     Route: 065
  3. GATTEX [Suspect]
     Active Substance: TEDUGLUTIDE\WATER
     Dosage: 0.1875 MILLILITER, 1X/DAY:QD
     Route: 065
  4. GATTEX [Suspect]
     Active Substance: TEDUGLUTIDE\WATER
     Dosage: 0.35 MILLILITER, 1X/DAY:QD
     Route: 065
  5. GATTEX [Suspect]
     Active Substance: TEDUGLUTIDE\WATER
     Dosage: 3.6 MILLIGRAM, 1X/DAY:QD
     Route: 065
  6. GATTEX [Suspect]
     Active Substance: TEDUGLUTIDE\WATER
     Dosage: 0.35 UNK, 1X/DAY:QD
     Route: 058
     Dates: start: 20200421
  7. GATTEX [Suspect]
     Active Substance: TEDUGLUTIDE\WATER
     Dosage: 0.35 MILLILITER, 1X/DAY:QD
     Route: 065
  8. GATTEX [Suspect]
     Active Substance: TEDUGLUTIDE\WATER
     Dosage: 0.1875 MILLILITER, 1X/DAY:QD
     Route: 065
  9. GATTEX [Suspect]
     Active Substance: TEDUGLUTIDE\WATER
     Dosage: 0.1875 MILLILITER, 1X/DAY:QD
     Route: 065
  10. GATTEX [Suspect]
     Active Substance: TEDUGLUTIDE\WATER
     Dosage: 3.6 MILLIGRAM, 1X/DAY:QD
     Route: 065
  11. GATTEX [Suspect]
     Active Substance: TEDUGLUTIDE\WATER
     Dosage: 3.6 MILLIGRAM, 1X/DAY:QD
     Route: 065
  12. GATTEX [Suspect]
     Active Substance: TEDUGLUTIDE\WATER
     Indication: SHORT-BOWEL SYNDROME
     Dosage: 0.1875 MILLILITER, 1X/DAY:QD
     Route: 065
  13. GATTEX [Suspect]
     Active Substance: TEDUGLUTIDE\WATER
     Dosage: 0.35 MILLILITER, 1X/DAY:QD
     Route: 065
  14. GATTEX [Suspect]
     Active Substance: TEDUGLUTIDE\WATER
     Dosage: 0.35 UNK, 1X/DAY:QD
     Route: 058
     Dates: start: 20200421
  15. GATTEX [Suspect]
     Active Substance: TEDUGLUTIDE\WATER
     Dosage: 0.35 UNK, 1X/DAY:QD
     Route: 058
     Dates: start: 20200421
  16. GATTEX [Suspect]
     Active Substance: TEDUGLUTIDE\WATER
     Dosage: 0.1875 MILLILITER, 1X/DAY:QD
     Route: 065
  17. GATTEX [Suspect]
     Active Substance: TEDUGLUTIDE\WATER
     Indication: SHORT-BOWEL SYNDROME
     Dosage: 0.1875 MILLILITER, 1X/DAY:QD
     Route: 065
  18. GATTEX [Suspect]
     Active Substance: TEDUGLUTIDE\WATER
     Dosage: 0.35 MILLILITER, 1X/DAY:QD
     Route: 065
  19. GATTEX [Suspect]
     Active Substance: TEDUGLUTIDE\WATER
     Dosage: 3.6 MILLIGRAM, 1X/DAY:QD
     Route: 065
  20. GATTEX [Suspect]
     Active Substance: TEDUGLUTIDE\WATER
     Dosage: 0.35 UNK, 1X/DAY:QD
     Route: 058
     Dates: start: 20200421

REACTIONS (9)
  - Drug ineffective [Unknown]
  - Dysuria [Unknown]
  - Fatigue [Unknown]
  - Treatment noncompliance [Unknown]
  - Weight increased [Unknown]
  - Diarrhoea [Unknown]
  - Therapy cessation [Unknown]
  - Localised oedema [Unknown]
  - Peripheral swelling [Unknown]
